FAERS Safety Report 16701159 (Version 1)
Quarter: 2019Q3

REPORT INFORMATION
  Report Type: Spontaneous
  Country: DE (occurrence: DE)
  Receive Date: 20190814
  Receipt Date: 20190814
  Transmission Date: 20191004
  Serious: Yes (Hospitalization)
  Sender: FDA-Public Use
  Company Number: DE-ABBVIE-19K-062-2885509-00

PATIENT
  Sex: Male

DRUGS (1)
  1. HUMIRA [Suspect]
     Active Substance: ADALIMUMAB
     Indication: PSORIASIS
     Route: 058

REACTIONS (4)
  - Hereditary neuropathy with liability to pressure palsies [Unknown]
  - Polyneuropathy [Unknown]
  - Multifocal motor neuropathy [Unknown]
  - Anti-myelin-associated glycoprotein associated polyneuropathy [Unknown]
